FAERS Safety Report 9501465 (Version 1)
Quarter: 2013Q3

REPORT INFORMATION
  Report Type: Spontaneous
  Country: JP (occurrence: JP)
  Receive Date: 20130905
  Receipt Date: 20130905
  Transmission Date: 20140515
  Serious: Yes (Other)
  Sender: FDA-Public Use
  Company Number: JP-GLAXOSMITHKLINE-B0919650A

PATIENT
  Age: 89 Year
  Sex: Male

DRUGS (5)
  1. VALTREX [Suspect]
     Indication: HERPES ZOSTER
     Dosage: 1000MG PER DAY
     Route: 048
     Dates: start: 20130819, end: 20130823
  2. ARICEPT D [Concomitant]
     Indication: DEMENTIA
     Dosage: 5MG PER DAY
     Route: 048
     Dates: start: 20130705
  3. GLIMICRON [Concomitant]
     Indication: DIABETES MELLITUS
     Dosage: 20MG PER DAY
     Route: 048
     Dates: start: 20130705
  4. ADALAT-CR [Concomitant]
     Indication: HYPERTENSION
     Dosage: 20MG PER DAY
     Route: 048
     Dates: start: 20130705
  5. TAKEPRON [Concomitant]
     Dosage: 15MG PER DAY
     Route: 048
     Dates: start: 20130705

REACTIONS (3)
  - Interstitial lung disease [Not Recovered/Not Resolved]
  - Pneumonia bacterial [Unknown]
  - Cough [Unknown]
